FAERS Safety Report 8842353 (Version 2)
Quarter: 2015Q3

REPORT INFORMATION
  Report Type: Report from Study
  Country: US (occurrence: US)
  Receive Date: 20121016
  Receipt Date: 20150817
  Transmission Date: 20151125
  Serious: Yes (Hospitalization)
  Sender: FDA-Public Use
  Company Number: US-ROCHE-1140092

PATIENT
  Sex: Male

DRUGS (4)
  1. PROTROPIN [Suspect]
     Active Substance: SOMATREM
     Indication: DWARFISM
     Route: 058
  2. NUTROPIN [Suspect]
     Active Substance: SOMATROPIN
     Indication: DWARFISM
     Route: 065
  3. PROTROPIN [Suspect]
     Active Substance: SOMATREM
     Route: 058
  4. PROTROPIN [Suspect]
     Active Substance: SOMATREM
     Route: 058

REACTIONS (1)
  - Angina pectoris [Unknown]
